FAERS Safety Report 14826063 (Version 2)
Quarter: 2018Q2

REPORT INFORMATION
  Report Type: Spontaneous
  Country: US (occurrence: US)
  Receive Date: 20180430
  Receipt Date: 20180503
  Transmission Date: 20180711
  Serious: No
  Sender: FDA-Public Use
  Company Number: US-JNJFOC-20180422782

PATIENT
  Sex: Male

DRUGS (1)
  1. RISPERDAL [Suspect]
     Active Substance: RISPERIDONE
     Indication: PRODUCT USED FOR UNKNOWN INDICATION
     Dosage: FOR TEN YEARS
     Route: 048
     Dates: start: 2005, end: 2010

REACTIONS (4)
  - Unevaluable event [Unknown]
  - Depression [Unknown]
  - Frustration tolerance decreased [Unknown]
  - Gynaecomastia [Unknown]
